FAERS Safety Report 6691673-1 (Version None)
Quarter: 2010Q2

REPORT INFORMATION
  Report Type: 
  Country: None (occurrence: None)
  Receive Date: 20100422
  Receipt Date: 20090903
  Transmission Date: 20101027
  Serious: No
  Sender: FDA-Public Use
  Company Number: US-ASTRAZENECA-2009SE11351

PATIENT
  Age: 69 Year
  Sex: Female
  Weight: 79.4 kg

DRUGS (4)
  1. TOPROL-XL [Suspect]
     Route: 048
  2. TOPROL-XL [Suspect]
     Route: 048
     Dates: start: 20070101
  3. LIPITOR [Concomitant]
  4. SYNTHROID [Concomitant]

REACTIONS (4)
  - FEELING ABNORMAL [None]
  - HYPOTENSION [None]
  - INCORRECT DOSE ADMINISTERED [None]
  - NERVOUSNESS [None]
